FAERS Safety Report 6653482-9 (Version None)
Quarter: 2010Q1

REPORT INFORMATION
  Report Type: 
  Country: None (occurrence: None)
  Receive Date: 20100323
  Receipt Date: 20100323
  Transmission Date: 20100710
  Serious: No
  Sender: FDA-Public Use
  Company Number: None

PATIENT
  Age: 59 Year
  Sex: Female

DRUGS (6)
  1. FLUOXETINE [Suspect]
     Dates: start: 20060124, end: 20070428
  2. OMEPRAZOLE [Concomitant]
  3. ASPIRIN [Concomitant]
  4. XANAX [Concomitant]
  5. OSCAL D [Concomitant]
  6. PREVACID [Concomitant]

REACTIONS (20)
  - ABDOMINAL PAIN [None]
  - BILE DUCT STENOSIS [None]
  - CHOLESTASIS [None]
  - CYTOMEGALOVIRUS INFECTION [None]
  - DIALYSIS [None]
  - DRUG TOXICITY [None]
  - FLUID RETENTION [None]
  - HEPATIC ENCEPHALOPATHY [None]
  - HEPATIC NECROSIS [None]
  - HEPATIC STEATOSIS [None]
  - HEPATOCELLULAR FOAMY CELL SYNDROME [None]
  - INTERNATIONAL NORMALISED RATIO INCREASED [None]
  - LIVER FUNCTION TEST ABNORMAL [None]
  - LIVER INJURY [None]
  - MITOCHONDRIAL TOXICITY [None]
  - POST PROCEDURAL COMPLICATION [None]
  - RENAL FAILURE [None]
  - REYE'S SYNDROME [None]
  - TRANSPLANT REJECTION [None]
  - WEIGHT INCREASED [None]
